FAERS Safety Report 4357284-8 (Version None)
Quarter: 2004Q2

REPORT INFORMATION
  Report Type: 
  Country: None (occurrence: None)
  Receive Date: 20040513
  Receipt Date: 20040430
  Transmission Date: 20050107
  Serious: Yes (Other)
  Sender: FDA-Public Use
  Company Number: PHNR2004AU00951

PATIENT
  Age: 35 Year
  Sex: Female

DRUGS (3)
  1. CLOZARIL [Suspect]
     Dosage: 13 - 225 MG/DAY
     Dates: start: 20000808
  2. VALPROATE SODIUM [Concomitant]
     Dosage: 500 MG MANE + 700 MG NOCTE
  3. ZOCOR [Concomitant]

REACTIONS (6)
  - BLOOD CHOLESTEROL INCREASED [None]
  - BLOOD GLUCOSE INCREASED [None]
  - BLOOD TRIGLYCERIDES INCREASED [None]
  - DIABETES MELLITUS [None]
  - HIGH DENSITY LIPOPROTEIN DECREASED [None]
  - LOW DENSITY LIPOPROTEIN INCREASED [None]
